FAERS Safety Report 13844136 (Version 1)
Quarter: 2017Q3

REPORT INFORMATION
  Report Type: Not Available
  Country: US (occurrence: US)
  Receive Date: 20170808
  Receipt Date: 20170808
  Transmission Date: 20171127
  Serious: No
  Sender: FDA-Public Use
  Company Number: US-ECOLAB-2017-US-004882

PATIENT
  Sex: Female

DRUGS (2)
  1. UNSPECIFIED PAIN MEDICATION [Concomitant]
     Active Substance: UNSPECIFIED INGREDIENT
  2. SCRUB-STAT [Suspect]
     Active Substance: CHLORHEXIDINE GLUCONATE
     Dosage: APPLIED TO VAGINAL AREA ONCE
     Route: 061
     Dates: start: 20170427, end: 20170427

REACTIONS (2)
  - Intentional product misuse [Unknown]
  - Vulvovaginal discomfort [Recovering/Resolving]

NARRATIVE: CASE EVENT DATE: 20170427
